FAERS Safety Report 14774058 (Version 3)
Quarter: 2018Q2

REPORT INFORMATION
  Report Type: Spontaneous
  Country: PT (occurrence: PT)
  Receive Date: 20180418
  Receipt Date: 20180630
  Transmission Date: 20180711
  Serious: Yes (Life-Threatening, Other)
  Sender: FDA-Public Use
  Company Number: PT-AUROBINDO-AUR-APL-2018-020951

PATIENT
  Age: 26 Year
  Sex: Female

DRUGS (6)
  1. FLUCLOXACILIN [Suspect]
     Active Substance: FLUCLOXACILLIN
     Indication: OROPHARYNGEAL CANDIDIASIS
     Dosage: UNKNOWN
     Route: 065
  2. DICLOXACILLIN [Suspect]
     Active Substance: DICLOXACILLIN
     Indication: PRODUCT USED FOR UNKNOWN INDICATION
     Dosage: UNK
     Route: 065
  3. PENICILLIN                         /00000901/ [Suspect]
     Active Substance: PENICILLIN G
     Indication: PRODUCT USED FOR UNKNOWN INDICATION
     Route: 065
  4. AMOXICILLIN. [Suspect]
     Active Substance: AMOXICILLIN
     Indication: PRODUCT USED FOR UNKNOWN INDICATION
     Dosage: UNKNOWN
     Route: 065
  5. CARBAMAZAPINE 400MG [Suspect]
     Active Substance: CARBAMAZEPINE
     Indication: EPILEPSY
     Dosage: ()
     Route: 065
  6. PIPERACILLIN AND TAZOBACTAM [Suspect]
     Active Substance: PIPERACILLIN SODIUM\TAZOBACTAM SODIUM
     Indication: PRODUCT USED FOR UNKNOWN INDICATION
     Dosage: UNKNOWN
     Route: 065

REACTIONS (12)
  - Hepatocellular injury [Recovering/Resolving]
  - Rash [Recovering/Resolving]
  - Pyrexia [Recovering/Resolving]
  - Eosinophilia [Unknown]
  - Rash generalised [Recovered/Resolved]
  - Dermatitis contact [Recovered/Resolved]
  - Drug reaction with eosinophilia and systemic symptoms [Recovering/Resolving]
  - Eczema [Recovered/Resolved]
  - Rash maculo-papular [Recovered/Resolved]
  - Occupational exposure to product [Unknown]
  - Skin lesion [Recovering/Resolving]
  - Therapeutic product cross-reactivity [Recovered/Resolved]

NARRATIVE: CASE EVENT DATE: 2014
